FAERS Safety Report 9032419 (Version 6)
Quarter: 2013Q2

REPORT INFORMATION
  Report Type: Report from Study
  Country: US (occurrence: US)
  Receive Date: 20130117
  Receipt Date: 20130419
  Transmission Date: 20140414
  Serious: Yes (Other)
  Sender: FDA-Public Use
  Company Number: US-ROCHE-1173850

PATIENT
  Age: 47 Year
  Sex: Female

DRUGS (6)
  1. PEGASYS [Suspect]
     Indication: CHRONIC HEPATITIS C
     Route: 058
     Dates: start: 20121011, end: 20130225
  2. PEGASYS [Suspect]
     Route: 058
     Dates: start: 20121011
  3. RIBAVIRIN [Suspect]
     Indication: CHRONIC HEPATITIS C
     Route: 048
     Dates: start: 20121011, end: 20130225
  4. RIBAVIRIN [Suspect]
     Route: 048
     Dates: start: 20121011
  5. VICTRELIS [Suspect]
     Indication: CHRONIC HEPATITIS C
     Route: 048
     Dates: start: 20121108, end: 20130225
  6. PROMETHAZINE [Concomitant]

REACTIONS (14)
  - Fatigue [Recovering/Resolving]
  - Anaemia [Not Recovered/Not Resolved]
  - Epistaxis [Recovered/Resolved]
  - Platelet count decreased [Not Recovered/Not Resolved]
  - Red blood cell count decreased [Unknown]
  - Gait disturbance [Unknown]
  - Heart rate increased [Recovered/Resolved]
  - Dysgeusia [Recovered/Resolved]
  - Periorbital contusion [Not Recovered/Not Resolved]
  - Blood test abnormal [Not Recovered/Not Resolved]
  - Gallbladder disorder [Unknown]
  - Splenectomy [Unknown]
  - Nausea [Unknown]
  - Spleen disorder [Unknown]
